FAERS Safety Report 5536427-4 (Version None)
Quarter: 2007Q4

REPORT INFORMATION
  Report Type: 
  Country: None (occurrence: None)
  Receive Date: 20071206
  Receipt Date: 20071122
  Transmission Date: 20080405
  Serious: Yes (Other)
  Sender: FDA-Public Use
  Company Number: CH-GENENTECH-249995

PATIENT
  Sex: Female

DRUGS (4)
  1. BEVACIZUMAB [Suspect]
     Indication: BREAST CANCER
     Dosage: 780 UNK, UNK
     Route: 042
     Dates: start: 20070627, end: 20070823
  2. DOXORUBICIN HCL [Suspect]
     Indication: BREAST CANCER
     Dosage: 27 UNK, UNK
     Route: 042
     Dates: start: 20070627, end: 20070823
  3. NEXIUM [Concomitant]
     Indication: DRUG USE FOR UNKNOWN INDICATION
     Dosage: 20 G, QD
     Dates: start: 20070712, end: 20070911
  4. NEXIUM [Concomitant]
     Dosage: 40 G, UNK
     Dates: start: 20070912

REACTIONS (1)
  - ALVEOLITIS [None]
